FAERS Safety Report 9215276 (Version 1)
Quarter: 2013Q2

REPORT INFORMATION
  Report Type: Spontaneous
  Country: US (occurrence: US)
  Receive Date: 20130405
  Receipt Date: 20130405
  Transmission Date: 20140414
  Serious: Yes (Hospitalization)
  Sender: FDA-Public Use
  Company Number: US-PFIZER INC-2013104582

PATIENT
  Age: 67 Year
  Sex: Female

DRUGS (4)
  1. SONATA [Suspect]
     Indication: INSOMNIA
     Dosage: 10 MG, AS NEEDED
  2. VALIUM [Suspect]
     Indication: BACK PAIN
     Dosage: 5 MG, AS NEEDED
  3. ESCITALOPRAM [Suspect]
     Indication: DEPRESSION
     Dosage: 10 MG, 1 IN 1 DAY (DAILY)
     Route: 048
     Dates: start: 201210
  4. ESCITALOPRAM [Suspect]
     Dosage: 20 MG, 1 IN 1 DAY (DAILY)
     Route: 048
     Dates: end: 20130205

REACTIONS (4)
  - Intentional overdose [Unknown]
  - Suicide attempt [Unknown]
  - Depression [Recovered/Resolved]
  - Drug ineffective [Unknown]
